FAERS Safety Report 8982852 (Version 1)
Quarter: 2012Q4

REPORT INFORMATION
  Report Type: Report from Study
  Country: FR (occurrence: FR)
  Receive Date: 20121221
  Receipt Date: 20121221
  Transmission Date: 20130627
  Serious: Yes (Hospitalization)
  Sender: FDA-Public Use
  Company Number: FR-ROCHE-1139662

PATIENT
  Age: 66 Year
  Sex: Male
  Weight: 67 kg

DRUGS (10)
  1. TEMOZOLOMIDE [Suspect]
     Indication: BRAIN NEOPLASM MALIGNANT
     Dosage: last dose prior to sae: 12/feb/2011
     Route: 048
     Dates: start: 20101214
  2. ZANEXTRA [Concomitant]
     Route: 065
     Dates: start: 20111027
  3. AVLOCARDYL [Concomitant]
     Route: 065
     Dates: start: 20110112
  4. AVLOCARDYL [Concomitant]
     Route: 065
     Dates: start: 20120920
  5. APROVEL [Concomitant]
     Route: 065
     Dates: start: 201205
  6. APROVEL [Concomitant]
     Route: 065
     Dates: start: 20120920
  7. KEPPRA [Concomitant]
     Route: 065
     Dates: start: 20111203
  8. XATRAL [Concomitant]
     Route: 065
     Dates: start: 201102
  9. BEVACIZUMAB [Suspect]
     Indication: BRAIN NEOPLASM MALIGNANT
     Dosage: date of last dose prior to SAE- 07/Sep/2012
     Route: 042
     Dates: start: 20110307, end: 20120907
  10. BEVACIZUMAB [Suspect]
     Dosage: restarted
     Route: 042
     Dates: start: 20121029

REACTIONS (1)
  - Coronary artery stenosis [Recovered/Resolved]
